FAERS Safety Report 12532895 (Version 2)
Quarter: 2021Q1

REPORT INFORMATION
  Report Type: Spontaneous
  Country: US (occurrence: US)
  Receive Date: 20160706
  Receipt Date: 20210209
  Transmission Date: 20210419
  Serious: Yes (Other)
  Sender: FDA-Public Use
  Company Number: US-PURDUE-USA-2015-0125922

PATIENT
  Sex: Male

DRUGS (1)
  1. BUTRANS [Suspect]
     Active Substance: BUPRENORPHINE
     Indication: PAIN
     Dosage: UNK MCG/HR, WEEKLY
     Route: 062

REACTIONS (7)
  - Product adhesion issue [Unknown]
  - Chills [Unknown]
  - Hyperhidrosis [Unknown]
  - Depression [Unknown]
  - Sleep disorder [Unknown]
  - Drug dependence [Unknown]
  - Pain [Unknown]
